FAERS Safety Report 13260588 (Version 3)
Quarter: 2017Q1

REPORT INFORMATION
  Report Type: Spontaneous
  Country: US (occurrence: US)
  Receive Date: 20170222
  Receipt Date: 20170323
  Transmission Date: 20170428
  Serious: Yes (Other)
  Sender: FDA-Public Use
  Company Number: US-JNJFOC-20170216250

PATIENT

DRUGS (1)
  1. DARATUMUMAB [Suspect]
     Active Substance: DARATUMUMAB
     Indication: CARDIAC AMYLOIDOSIS
     Route: 042

REACTIONS (5)
  - Drug effect incomplete [Unknown]
  - Infusion related reaction [Unknown]
  - Hospice care [Unknown]
  - Cardiomyopathy [Unknown]
  - Off label use [Unknown]
